FAERS Safety Report 14113500 (Version 1)
Quarter: 2017Q4

REPORT INFORMATION
  Report Type: Spontaneous
  Country: US (occurrence: US)
  Receive Date: 20171022
  Receipt Date: 20171022
  Transmission Date: 20180321
  Serious: Yes (Other)
  Sender: FDA-Public Use
  Company Number: None

PATIENT
  Age: 23 Year
  Sex: Female
  Weight: 81 kg

DRUGS (1)
  1. NUVARING [Suspect]
     Active Substance: ETHINYL ESTRADIOL\ETONOGESTREL
     Indication: CONTRACEPTION
     Dosage: QUANTITY:1 RING;OTHER FREQUENCY:PER 1 MONTH;?
     Route: 067
     Dates: start: 20170522, end: 20170922

REACTIONS (3)
  - Pain [None]
  - Haemorrhage [None]
  - Uterine cervical laceration [None]

NARRATIVE: CASE EVENT DATE: 20170922
